FAERS Safety Report 4558368-1 (Version None)
Quarter: 2005Q1

REPORT INFORMATION
  Report Type: 
  Country: None (occurrence: None)
  Receive Date: 20050121
  Receipt Date: 20050111
  Transmission Date: 20050727
  Serious: Yes (Hospitalization)
  Sender: FDA-Public Use
  Company Number: JP-MERCK-0501USA01774

PATIENT
  Age: 50 Year
  Sex: Male

DRUGS (7)
  1. ALDOMET [Suspect]
     Indication: HYPERTENSION
     Route: 048
     Dates: start: 20041130, end: 20050111
  2. ALDOMET [Suspect]
     Route: 048
     Dates: start: 20041116, end: 20041129
  3. LOPRESSOR [Concomitant]
     Indication: HYPERTENSION
     Route: 048
     Dates: start: 20040201, end: 20041227
  4. LOPRESSOR [Concomitant]
     Route: 048
     Dates: start: 20041228
  5. LEXOTAN [Concomitant]
     Indication: HYPERTENSION
     Route: 048
     Dates: start: 20041116
  6. NIFEDIPINE [Concomitant]
     Route: 048
     Dates: start: 20041116
  7. ZESTRIL [Concomitant]
     Indication: HYPERTENSION
     Route: 048
     Dates: start: 20041102

REACTIONS (1)
  - RHABDOMYOLYSIS [None]
